FAERS Safety Report 6259504-1 (Version None)
Quarter: 2009Q3

REPORT INFORMATION
  Report Type: 
  Country: None (occurrence: None)
  Receive Date: 20090708
  Receipt Date: 20090629
  Transmission Date: 20100115
  Serious: Yes (Hospitalization, Other)
  Sender: FDA-Public Use
  Company Number: ES-ROCHE-640640

PATIENT
  Age: 46 Year
  Sex: Male

DRUGS (7)
  1. CEFTRIAXONE SODIUM [Suspect]
     Indication: DRUG USE FOR UNKNOWN INDICATION
     Route: 042
  2. INTERFERON ALFA [Suspect]
     Route: 065
  3. PEG-INTERFERON A-2A (RO 25-8310) [Suspect]
     Route: 065
  4. RIBAVIRIN [Suspect]
     Route: 065
  5. HEPARIN SODIUM [Suspect]
     Indication: THROMBOSIS PROPHYLAXIS
     Route: 042
  6. CEFEPIME [Suspect]
     Indication: DRUG USE FOR UNKNOWN INDICATION
     Route: 048
  7. ENOXAPARIN SODIUM [Suspect]
     Indication: DRUG USE FOR UNKNOWN INDICATION
     Route: 058

REACTIONS (3)
  - ADRENAL INSUFFICIENCY [None]
  - ANTIPHOSPHOLIPID SYNDROME [None]
  - HEPATITIS C VIRUS TEST [None]
